FAERS Safety Report 6958833-3 (Version None)
Quarter: 2010Q3

REPORT INFORMATION
  Report Type: 
  Country: None (occurrence: None)
  Receive Date: 20100831
  Receipt Date: 20100721
  Transmission Date: 20110219
  Serious: Yes (Other)
  Sender: FDA-Public Use
  Company Number: US-BAXTER-2010BH003489

PATIENT
  Age: 33 Year
  Sex: Female
  Weight: 57 kg

DRUGS (13)
  1. HEPARIN SODIUM INJECTION [Suspect]
     Indication: CENTRAL VENOUS CATHETERISATION
     Route: 042
     Dates: start: 20080114, end: 20080114
  2. HEPARIN SODIUM INJECTION [Suspect]
     Indication: CENTRAL VENOUS CATHETER REMOVAL
     Route: 042
     Dates: start: 20080114, end: 20080114
  3. HEPARIN SODIUM INJECTION [Suspect]
     Route: 042
     Dates: start: 20080101, end: 20080301
  4. HEPARIN SODIUM INJECTION [Suspect]
     Route: 042
     Dates: start: 20080101, end: 20080301
  5. HEPARIN SODIUM INJECTION [Suspect]
     Route: 042
     Dates: start: 20080314, end: 20080314
  6. HEPARIN SODIUM INJECTION [Suspect]
     Route: 042
     Dates: start: 20080314, end: 20080314
  7. HEPARIN [Suspect]
     Indication: PRODUCT USED FOR UNKNOWN INDICATION
     Route: 065
     Dates: start: 20080114, end: 20080305
  8. DITROPAN                                /USA/ [Concomitant]
     Indication: PRODUCT USED FOR UNKNOWN INDICATION
     Route: 065
  9. LOPERAMIDE [Concomitant]
     Indication: PRODUCT USED FOR UNKNOWN INDICATION
     Route: 065
  10. PAREGORIC [Concomitant]
     Indication: PRODUCT USED FOR UNKNOWN INDICATION
     Route: 065
  11. PANTOPRAZOLE SODIUM [Concomitant]
     Indication: PRODUCT USED FOR UNKNOWN INDICATION
     Route: 065
  12. TYLENOL W/ CODEINE NO. 3 [Concomitant]
     Indication: PRODUCT USED FOR UNKNOWN INDICATION
     Route: 065
  13. CIPRO [Concomitant]
     Indication: PRODUCT USED FOR UNKNOWN INDICATION
     Route: 065

REACTIONS (4)
  - DIZZINESS [None]
  - DYSPNOEA [None]
  - ERYTHEMA [None]
  - HOT FLUSH [None]
